FAERS Safety Report 7867040-1 (Version None)
Quarter: 2011Q4

REPORT INFORMATION
  Report Type: 
  Country: None (occurrence: None)
  Receive Date: 20111028
  Receipt Date: 20111024
  Transmission Date: 20120403
  Serious: Yes (Other)
  Sender: FDA-Public Use
  Company Number: KR-JNJFOC-20111007106

PATIENT
  Age: 64 Year
  Sex: Female

DRUGS (3)
  1. INVEGA [Suspect]
     Dosage: FOR ONE MONTH
     Route: 048
  2. INVEGA [Suspect]
     Route: 048
  3. INVEGA [Suspect]
     Indication: SCHIZOPHRENIA
     Route: 048

REACTIONS (3)
  - DELUSION [None]
  - PSYCHOTIC BEHAVIOUR [None]
  - EXTRAPYRAMIDAL DISORDER [None]
